FAERS Safety Report 20860761 (Version 13)
Quarter: 2024Q4

REPORT INFORMATION
  Report Type: Spontaneous
  Country: CA (occurrence: CA)
  Receive Date: 20220523
  Receipt Date: 20241114
  Transmission Date: 20250114
  Serious: Yes (Hospitalization, Other)
  Sender: PFIZER
  Company Number: CA-PFIZER INC-202200540540

PATIENT
  Age: 44 Year
  Sex: Female

DRUGS (4)
  1. ABRILADA [Suspect]
     Active Substance: ADALIMUMAB-AFZB
     Indication: Crohn^s disease
     Dosage: 160 MG WEEK 0 (1 DF WK 0- 160MG, WK 2-80 MG, THEN 40MG Q 2 WEEKS)
     Route: 058
     Dates: start: 20220505
  2. ABRILADA [Suspect]
     Active Substance: ADALIMUMAB-AFZB
     Dosage: 1 DF, WK 0- 160MG, WK 2-80 MG, THEN 40MG Q 2 WEEKS
     Route: 058
     Dates: start: 2023
  3. METHOTREXATE SODIUM [Concomitant]
     Active Substance: METHOTREXATE SODIUM
     Dosage: 1 DF
     Route: 065
  4. SULFASALAZINE [Concomitant]
     Active Substance: SULFASALAZINE
     Dosage: 1 DF
     Route: 065

REACTIONS (8)
  - Crohn^s disease [Recovered/Resolved]
  - Diarrhoea haemorrhagic [Recovering/Resolving]
  - Rectal haemorrhage [Unknown]
  - Abscess [Unknown]
  - Feeding disorder [Unknown]
  - Rectal prolapse [Unknown]
  - Dyschezia [Unknown]
  - Condition aggravated [Unknown]

NARRATIVE: CASE EVENT DATE: 20220101
